FAERS Safety Report 26082429 (Version 1)
Quarter: 2025Q4

REPORT INFORMATION
  Report Type: Spontaneous
  Country: US (occurrence: US)
  Receive Date: 20251124
  Receipt Date: 20251124
  Transmission Date: 20260117
  Serious: Yes (Life-Threatening, Hospitalization, Other)
  Sender: SANDOZ
  Company Number: US-SANDOZ-SDZ2025US087958

PATIENT
  Sex: Male

DRUGS (5)
  1. CARBOPLATIN [Suspect]
     Active Substance: CARBOPLATIN
     Indication: Hormone-refractory prostate cancer
     Dosage: 137 MG, OTHER, Q3W (STRENGTH 137.4 MG)
     Route: 042
     Dates: start: 20250424
  2. CARBOPLATIN [Suspect]
     Active Substance: CARBOPLATIN
     Dosage: 137 MG, OTHER, Q3W (STRENGTH 137.4 MG)
     Route: 042
     Dates: start: 20251029
  3. COMPAZINE [Suspect]
     Active Substance: PROCHLORPERAZINE MALEATE
     Indication: Product used for unknown indication
     Route: 065
  4. LUTETIUM LU-177 VIPIVOTIDE TETRAXETAN [Suspect]
     Active Substance: LUTETIUM LU-177 VIPIVOTIDE TETRAXETAN
     Indication: Hormone-refractory prostate cancer
     Dosage: 200 UCI, OTHER, Q6W
     Route: 042
     Dates: start: 20250425
  5. LUTETIUM LU-177 VIPIVOTIDE TETRAXETAN [Suspect]
     Active Substance: LUTETIUM LU-177 VIPIVOTIDE TETRAXETAN
     Dosage: 200 UCI, OTHER, Q6W
     Route: 042
     Dates: start: 20251007

REACTIONS (10)
  - Hormone-refractory prostate cancer [Unknown]
  - Headache [Unknown]
  - Dizziness [Unknown]
  - Nausea [Unknown]
  - Vomiting [Unknown]
  - Disease progression [Unknown]
  - Fatigue [Unknown]
  - Anaemia [Unknown]
  - Back pain [Unknown]
  - Tachycardia [Unknown]

NARRATIVE: CASE EVENT DATE: 20251101
